FAERS Safety Report 25272890 (Version 2)
Quarter: 2025Q3

REPORT INFORMATION
  Report Type: Report from Study
  Country: US (occurrence: US)
  Receive Date: 20250506
  Receipt Date: 20250716
  Transmission Date: 20251021
  Serious: No
  Sender: SUNOVION
  Company Number: US-SUMITOMO PHARMA SWITZERLAND GMBH-2025SPA004348

PATIENT

DRUGS (10)
  1. ORGOVYX [Suspect]
     Active Substance: RELUGOLIX
     Indication: Prostate cancer
     Route: 048
  2. ORGOVYX [Suspect]
     Active Substance: RELUGOLIX
     Dosage: 120 MG, QD
     Route: 048
     Dates: start: 202110
  3. VITAMIN B-COMPLEX [Concomitant]
     Active Substance: DEXPANTHENOL\NIACINAMIDE\PYRIDOXINE HYDROCHLORIDE\RIBOFLAVIN 5^-PHOSPHATE SODIUM\THIAMINE HYDROCHLOR
     Route: 048
  4. CIPROFLOXACIN HYDROCHLORIDE [Concomitant]
     Active Substance: CIPROFLOXACIN HYDROCHLORIDE
     Route: 048
  5. CRANBERRY [Concomitant]
     Active Substance: CRANBERRY
     Route: 048
  6. FISH OIL [Concomitant]
     Active Substance: FISH OIL
     Route: 048
  7. VITAMIN C [Concomitant]
     Active Substance: ASCORBIC ACID
     Route: 048
  8. XTANDI [Concomitant]
     Active Substance: ENZALUTAMIDE
     Route: 048
  9. VITAMIN D3 [Concomitant]
     Active Substance: CHOLECALCIFEROL
     Route: 065
  10. B Complex with b-12 [Concomitant]
     Route: 065

REACTIONS (5)
  - Hypotonia [Unknown]
  - Chills [Unknown]
  - Weight decreased [Unknown]
  - Hot flush [Unknown]
  - Fatigue [Unknown]
